FAERS Safety Report 6075510-4 (Version None)
Quarter: 2009Q1

REPORT INFORMATION
  Report Type: 
  Country: None (occurrence: None)
  Receive Date: 20090210
  Receipt Date: 20090210
  Transmission Date: 20090719
  Serious: No
  Sender: FDA-Public Use
  Company Number: None

PATIENT
  Age: 27 Year
  Sex: Female
  Weight: 63.5036 kg

DRUGS (3)
  1. BUDEPRION XL 150 MG TEVA [Suspect]
     Indication: DEPRESSION
     Dosage: 150 MG Q DAY PO
     Route: 048
     Dates: start: 20090114, end: 20090205
  2. LEXAPRO [Concomitant]
  3. CLONAZEPAM [Concomitant]

REACTIONS (1)
  - MIGRAINE [None]
